FAERS Safety Report 9721463 (Version 1)
Quarter: 2013Q4

REPORT INFORMATION
  Report Type: Report from Study
  Country: US (occurrence: US)
  Receive Date: 20131129
  Receipt Date: 20131129
  Transmission Date: 20140711
  Serious: Yes (Death, Other)
  Sender: FDA-Public Use
  Company Number: US-TAKEDA-2013TUS002680

PATIENT
  Sex: 0

DRUGS (2)
  1. COLCRYS [Suspect]
     Indication: GOUT
     Dosage: UNK
     Dates: end: 20131117
  2. INSULIN [Concomitant]
     Indication: DIABETES MELLITUS

REACTIONS (2)
  - Myocardial infarction [Fatal]
  - Weight decreased [Unknown]
